FAERS Safety Report 4749266-9 (Version None)
Quarter: 2005Q3

REPORT INFORMATION
  Report Type: 
  Country: None (occurrence: None)
  Receive Date: 20050817
  Receipt Date: 20050812
  Transmission Date: 20060218
  Serious: Yes (Hospitalization)
  Sender: FDA-Public Use
  Company Number: 2005FR-00229

PATIENT
  Age: 74 Year
  Sex: Male
  Weight: 65 kg

DRUGS (6)
  1. ASPIRIN [Suspect]
     Indication: THROMBOSIS PROPHYLAXIS
     Dosage: 150MG, OD, ORAL
     Route: 048
     Dates: start: 20050725, end: 20050728
  2. ENOXAPARIN SODIUM [Concomitant]
  3. SIMVASTATIN [Concomitant]
  4. PARACETAMOL [Concomitant]
  5. MOVICOL [Concomitant]
  6. ACETAMINOPHEN W/ CODEINE [Concomitant]

REACTIONS (1)
  - GASTROINTESTINAL HAEMORRHAGE [None]
